FAERS Safety Report 5293044-1 (Version None)
Quarter: 2007Q2

REPORT INFORMATION
  Report Type: 
  Country: None (occurrence: None)
  Receive Date: 20070411
  Receipt Date: 20070328
  Transmission Date: 20071010
  Serious: Yes (Hospitalization)
  Sender: FDA-Public Use
  Company Number: PHNU2007DE00502

PATIENT
  Sex: Female

DRUGS (3)
  1. TEGRETOL [Suspect]
     Indication: PARAESTHESIA
     Dosage: 200 MG/DAY
     Route: 048
     Dates: start: 20061101, end: 20061201
  2. TEGRETOL [Suspect]
     Dosage: 400 MG/DAY
     Route: 048
     Dates: start: 20061201
  3. TEGRETOL [Suspect]
     Dosage: 200 MG/DAY
     Route: 048

REACTIONS (7)
  - CONDITION AGGRAVATED [None]
  - DRUG WITHDRAWAL SYNDROME [None]
  - HEADACHE [None]
  - PARAESTHESIA [None]
  - SUDDEN HEARING LOSS [None]
  - TINNITUS [None]
  - WEIGHT INCREASED [None]
